FAERS Safety Report 9151795 (Version 1)
Quarter: 2013Q1

REPORT INFORMATION
  Report Type: Spontaneous
  Country: US (occurrence: US)
  Receive Date: 20130308
  Receipt Date: 20130308
  Transmission Date: 20140127
  Serious: No
  Sender: FDA-Public Use
  Company Number: US-PFIZER INC-2013081682

PATIENT
  Age: 63 Year
  Sex: Female
  Weight: 79 kg

DRUGS (3)
  1. NEURONTIN [Suspect]
     Indication: SYSTEMIC LUPUS ERYTHEMATOSUS
     Dosage: UNK
     Route: 048
  2. NEURONTIN [Suspect]
     Indication: FIBROMYALGIA
  3. IRON [Concomitant]
     Indication: ANAEMIA
     Dosage: 325 MG DAILY
     Route: 048

REACTIONS (1)
  - Drug ineffective [Unknown]
